FAERS Safety Report 8026366-1 (Version None)
Quarter: 2012Q1

REPORT INFORMATION
  Report Type: 
  Country: None (occurrence: None)
  Receive Date: 20120105
  Receipt Date: 20111230
  Transmission Date: 20120608
  Serious: Yes (Death, Hospitalization)
  Sender: FDA-Public Use
  Company Number: FR-ABBOTT-12P-056-0888577-00

PATIENT
  Sex: Male

DRUGS (2)
  1. PERINDOPRIL SERVIER 4 MG [Suspect]
     Indication: PRODUCT USED FOR UNKNOWN INDICATION
     Route: 048
  2. LASIX [Suspect]
     Indication: PRODUCT USED FOR UNKNOWN INDICATION
     Route: 048

REACTIONS (5)
  - RENAL FAILURE ACUTE [None]
  - LUNG INFECTION [None]
  - ACUTE PULMONARY OEDEMA [None]
  - VENTRICULAR ARRHYTHMIA [None]
  - RESPIRATORY DISTRESS [None]
